FAERS Safety Report 7238319-1 (Version None)
Quarter: 2011Q1

REPORT INFORMATION
  Report Type: 
  Country: None (occurrence: None)
  Receive Date: 20110121
  Receipt Date: 20110112
  Transmission Date: 20110831
  Serious: Yes (Other)
  Sender: FDA-Public Use
  Company Number: US-JNJFOC-20110103324

PATIENT
  Sex: Female

DRUGS (5)
  1. REMICADE [Suspect]
     Indication: RHEUMATOID ARTHRITIS
     Route: 042
  2. VICODIN [Concomitant]
     Indication: PAIN
  3. FOLIC ACID [Concomitant]
     Indication: FOLATE DEFICIENCY
     Route: 048
  4. VITAMIN D [Concomitant]
     Indication: OSTEOPOROSIS
  5. VITAMIN B6 [Concomitant]
     Indication: OSTEOPOROSIS
     Route: 048

REACTIONS (4)
  - EXOSTOSIS [None]
  - MUSCULOSKELETAL STIFFNESS [None]
  - TENDON RUPTURE [None]
  - MUSCULOSKELETAL PAIN [None]
